FAERS Safety Report 4627482-4 (Version None)
Quarter: 2005Q2

REPORT INFORMATION
  Report Type: 
  Country: None (occurrence: None)
  Receive Date: 20050405
  Receipt Date: 20050322
  Transmission Date: 20051028
  Serious: Yes (Hospitalization, Other)
  Sender: FDA-Public Use
  Company Number: 2005048604

PATIENT
  Sex: Male
  Weight: 35 kg

DRUGS (12)
  1. VORICONAZOLE (VORICONAZOLE) [Suspect]
     Indication: CANDIDIASIS
     Dosage: 600 MG (BID INTERVAL: EVERY DAY), INTRAVENOUS
     Route: 042
     Dates: start: 20050101
  2. CIPROFLOXACIN [Concomitant]
  3. METHYLPREDNISOLONE [Concomitant]
  4. PANTOPRAZOLE (PANTOPRAZOLE) [Concomitant]
  5. LINEZOLID (LINEZOLID) [Concomitant]
  6. ACYCLOVIR [Concomitant]
  7. OCTREOTIDE ACETATE [Concomitant]
  8. MYCOPHENOLATE MOFETIL (MYCOPHENOLATE MOFETIL) [Concomitant]
  9. GABAPENTIN [Concomitant]
  10. CASPOFUNGIN (CASPOFUNGIN) [Concomitant]
  11. MONTELUKAST SODIUM (MONTELUKAST SODIUM) [Concomitant]
  12. ALBUTEROL SULFATE HFA [Concomitant]

REACTIONS (7)
  - COMA [None]
  - DRUG LEVEL INCREASED [None]
  - DYSARTHRIA [None]
  - HAEMODIALYSIS [None]
  - REACTION TO MEDICAL AGENT PRESERVATIVES [None]
  - TONGUE DISORDER [None]
  - WEIGHT INCREASED [None]
